FAERS Safety Report 5452000-0 (Version None)
Quarter: 2007Q3

REPORT INFORMATION
  Report Type: 
  Country: None (occurrence: None)
  Receive Date: 20070912
  Receipt Date: 20070830
  Transmission Date: 20080115
  Serious: Yes (Hospitalization)
  Sender: FDA-Public Use
  Company Number: VNL_00591_2007

PATIENT
  Sex: Female

DRUGS (3)
  1. APO-GO (APO-GO - APOMORPHINE HYDROCHLORIDE) (NOT SPECIFIED) [Suspect]
     Indication: PARKINSON'S DISEASE
     Dosage: (100 MG PER DAY FOR 1 YEAR 6 MONTHS SUBCUTANEOUS)
     Route: 058
  2. SINEMET [Concomitant]
  3. SYMMETREL [Concomitant]

REACTIONS (1)
  - CARDIAC VENTRICULAR DISORDER [None]
